FAERS Safety Report 4294790-9 (Version None)
Quarter: 2004Q1

REPORT INFORMATION
  Report Type: 
  Country: None (occurrence: None)
  Receive Date: 20040216
  Receipt Date: 20020801
  Transmission Date: 20041129
  Serious: No
  Sender: FDA-Public Use
  Company Number: US-GLAXOSMITHKLINE-A0376701A

PATIENT
  Age: 50 Year
  Sex: Female

DRUGS (7)
  1. LAMICTAL [Suspect]
     Indication: BIPOLAR DISORDER
     Dosage: 275MG PER DAY
     Route: 048
  2. SYNTHROID [Concomitant]
  3. COUMADIN [Concomitant]
  4. BENADRYL [Concomitant]
  5. SINEMET [Concomitant]
  6. XANAX [Concomitant]
  7. NEURONTIN [Concomitant]

REACTIONS (3)
  - NAUSEA [None]
  - RASH [None]
  - RETCHING [None]
